FAERS Safety Report 8305385-1 (Version None)
Quarter: 2012Q2

REPORT INFORMATION
  Report Type: 
  Country: None (occurrence: None)
  Receive Date: 20120423
  Receipt Date: 20120416
  Transmission Date: 20120825
  Serious: Yes (Other)
  Sender: FDA-Public Use
  Company Number: US-SANOFI-AVENTIS-2012SA022651

PATIENT
  Age: 82 Year
  Sex: Female
  Weight: 55.91 kg

DRUGS (11)
  1. SOLOSTAR [Suspect]
  2. IRON [Concomitant]
     Indication: IRON DEFICIENCY
  3. WARFARIN SODIUM [Concomitant]
  4. BUMETANIDE [Concomitant]
     Indication: FLUID RETENTION
  5. POTASSIUM CHLORIDE [Concomitant]
  6. LANTUS [Suspect]
     Dosage: 14 UNITS EVERY MORNING DOSE:14 UNIT(S)
     Route: 058
  7. ALL OTHER THERAPEUTIC PRODUCTS [Concomitant]
  8. ATORVASTATIN [Concomitant]
  9. ACIPHEX [Concomitant]
  10. DIGOXIN [Suspect]
  11. JANUVIA [Concomitant]

REACTIONS (3)
  - TOXICITY TO VARIOUS AGENTS [None]
  - SYNCOPE [None]
  - PNEUMONIA [None]
